FAERS Safety Report 5273208-3 (Version None)
Quarter: 2007Q1

REPORT INFORMATION
  Report Type: 
  Country: None (occurrence: None)
  Receive Date: 20070319
  Receipt Date: 20070305
  Transmission Date: 20070707
  Serious: Yes (Other)
  Sender: FDA-Public Use
  Company Number: 237687

PATIENT
  Age: 24 Year
  Sex: Female
  Weight: 57 kg

DRUGS (12)
  1. RITUXIMAB CODE BROKEN (RITUXIMAB) CONC FOR SOLUTION FOR INFUSION [Suspect]
     Indication: SYSTEMIC LUPUS ERYTHEMATOSUS
     Dosage: 1000 MG, X4, INTRAVENOUS
     Route: 042
     Dates: start: 20060119, end: 20060721
  2. BIAXIN [Concomitant]
  3. CELLCEPT [Concomitant]
  4. PREDNISONE TAB [Concomitant]
  5. DILTIAZEM HCL [Concomitant]
  6. HYDROCHLOROTHIAZIDE [Concomitant]
  7. QUINAPRIL [Concomitant]
  8. NEXIUM [Concomitant]
  9. CALCIUM GLUCONATE [Concomitant]
  10. MULTIVITAMIN [Concomitant]
  11. TRIPHASIC BIRTH CONTROL PILL (ORAL CONTRACEPTIVE NOS) [Concomitant]
  12. ACETAMINOPHEN AND OXYCODONE HCL [Concomitant]

REACTIONS (3)
  - CULTURE WOUND POSITIVE [None]
  - HISTOPLASMOSIS [None]
  - TENOSYNOVITIS [None]
